FAERS Safety Report 25861203 (Version 1)
Quarter: 2025Q3

REPORT INFORMATION
  Report Type: Spontaneous
  Country: US (occurrence: US)
  Receive Date: 20250929
  Receipt Date: 20250929
  Transmission Date: 20251021
  Serious: Yes (Hospitalization, Other)
  Sender: ALEXION PHARMACEUTICALS
  Company Number: US-ASTRAZENECA-202509USA021854US

PATIENT
  Age: 54 Year
  Sex: Female
  Weight: 42.2 kg

DRUGS (27)
  1. FARXIGA [Suspect]
     Active Substance: DAPAGLIFLOZIN PROPANEDIOL
     Route: 065
  2. ORENITRAM [Suspect]
     Active Substance: TREPROSTINIL
     Indication: Pulmonary arterial hypertension
     Route: 065
  3. ORENITRAM [Suspect]
     Active Substance: TREPROSTINIL
  4. ORENITRAM [Suspect]
     Active Substance: TREPROSTINIL
     Route: 065
  5. ORENITRAM [Suspect]
     Active Substance: TREPROSTINIL
     Dosage: 1.375 MILLIGRAM, TID
  6. MELATONIN [Concomitant]
     Active Substance: MELATONIN
  7. LIDOCAINE [Concomitant]
     Active Substance: LIDOCAINE
  8. CALCIUM [Concomitant]
     Active Substance: CALCIUM
  9. IMODIUM [Concomitant]
     Active Substance: LOPERAMIDE HYDROCHLORIDE
  10. ALBUTEROL [Concomitant]
     Active Substance: ALBUTEROL
  11. TYLENOL [Concomitant]
     Active Substance: ACETAMINOPHEN
  12. BACTRIM [Concomitant]
     Active Substance: SULFAMETHOXAZOLE\TRIMETHOPRIM
  13. JARDIANCE [Concomitant]
     Active Substance: EMPAGLIFLOZIN
  14. LASIX [Concomitant]
     Active Substance: FUROSEMIDE
  15. PANTOPRAZOLE [Concomitant]
     Active Substance: PANTOPRAZOLE
  16. OPSUMIT [Concomitant]
     Active Substance: MACITENTAN
  17. TADALAFIL [Concomitant]
     Active Substance: TADALAFIL
  18. VITAMIN D2 [Concomitant]
     Active Substance: ERGOCALCIFEROL
  19. WINREVAIR [Concomitant]
     Active Substance: SOTATERCEPT-CSRK
  20. SPIRONOLACTONE [Concomitant]
     Active Substance: SPIRONOLACTONE
  21. OXYGEN [Concomitant]
     Active Substance: OXYGEN
  22. MIDODRINE [Concomitant]
     Active Substance: MIDODRINE
  23. PREDNISONE [Concomitant]
     Active Substance: PREDNISONE
  24. IPRATROPIUM [Concomitant]
     Active Substance: IPRATROPIUM
  25. SODIUM CHLORIDE [Concomitant]
     Active Substance: SODIUM CHLORIDE
  26. ONDANSETRON [Concomitant]
     Active Substance: ONDANSETRON
  27. MINERALS\VITAMINS [Concomitant]
     Active Substance: MINERALS\VITAMINS

REACTIONS (1)
  - Toxicity to various agents [Unknown]
